FAERS Safety Report 17670093 (Version 2)
Quarter: 2020Q2

REPORT INFORMATION
  Report Type: Spontaneous
  Country: US (occurrence: US)
  Receive Date: 20200415
  Receipt Date: 20200624
  Transmission Date: 20200713
  Serious: No
  Sender: FDA-Public Use
  Company Number: US-PFIZER INC-2020154982

PATIENT
  Age: 73 Year
  Sex: Female

DRUGS (2)
  1. IBRANCE [Suspect]
     Active Substance: PALBOCICLIB
     Indication: BREAST CANCER FEMALE
     Dosage: 125 MG, CYCLIC (1 CAPSULE BY MOUTH ONCE A DAY FOR 3 WEEKS AND THEN 1 WEEK OFF)
     Route: 048
     Dates: start: 20200226
  2. IBRANCE [Suspect]
     Active Substance: PALBOCICLIB
     Dosage: 125 MG, 1X/DAY
     Route: 048
     Dates: start: 20200325

REACTIONS (5)
  - Dyspnoea [Unknown]
  - Pruritus [Unknown]
  - Fatigue [Unknown]
  - Dry skin [Unknown]
  - Nausea [Unknown]
